FAERS Safety Report 10176366 (Version 1)
Quarter: 2014Q2

REPORT INFORMATION
  Report Type: Spontaneous
  Country: US (occurrence: US)
  Receive Date: 20140516
  Receipt Date: 20140516
  Transmission Date: 20141212
  Serious: Yes (Other)
  Sender: FDA-Public Use
  Company Number: US-TEVA-481714USA

PATIENT
  Age: 64 Year
  Sex: Female

DRUGS (3)
  1. GEMCITABINE [Suspect]
     Indication: CHOLANGIOCARCINOMA
     Dosage: 1000MG/M2; 2 CYCLES 6W APART
     Route: 042
  2. CISPLATIN [Suspect]
     Indication: CHOLANGIOCARCINOMA
     Dosage: 25MG/M2; 2ND CYCLE OF CHEMOTHERAPY
     Route: 042
  3. OXALIPLATIN [Concomitant]
     Indication: CHOLANGIOCARCINOMA
     Dosage: 100MG/M2; 1ST CYCLE OF CHEMOTHERAPY
     Route: 042

REACTIONS (3)
  - Retinopathy [Not Recovered/Not Resolved]
  - Renal failure [Not Recovered/Not Resolved]
  - Death [Fatal]
